FAERS Safety Report 5738219-X (Version None)
Quarter: 2008Q2

REPORT INFORMATION
  Report Type: 
  Country: None (occurrence: None)
  Receive Date: 20080514
  Receipt Date: 20080505
  Transmission Date: 20081010
  Serious: Yes (Other)
  Sender: FDA-Public Use
  Company Number: DE-PFIZER INC-2008033189

PATIENT
  Sex: Male
  Weight: 73 kg

DRUGS (10)
  1. ZOLOFT [Suspect]
     Indication: DEPRESSIVE SYMPTOM
     Dosage: DAILY DOSE:50MG
     Route: 048
     Dates: start: 20080301, end: 20080409
  2. AMANTADINE HCL [Suspect]
     Indication: IMPULSE-CONTROL DISORDER
     Dosage: DAILY DOSE:300MG
     Route: 048
     Dates: start: 20080319, end: 20080411
  3. CARDIOVASCULAR SYSTEM DRUGS [Concomitant]
  4. BELOC ZOK [Concomitant]
     Route: 048
  5. BENALAPRIL [Concomitant]
     Route: 048
  6. SORTIS [Concomitant]
     Route: 048
  7. ASPIRIN [Concomitant]
     Route: 048
  8. KALIUM ^VERLA^ [Concomitant]
     Route: 048
  9. OXAZEPAM [Concomitant]
     Route: 048
  10. INSULIN [Concomitant]
     Route: 058

REACTIONS (3)
  - BLOOD CREATININE INCREASED [None]
  - HALLUCINATION, VISUAL [None]
  - TREMOR [None]
